FAERS Safety Report 5656031-7 (Version None)
Quarter: 2008Q1

REPORT INFORMATION
  Report Type: 
  Country: None (occurrence: None)
  Receive Date: 20080307
  Receipt Date: 20080226
  Transmission Date: 20080703
  Serious: Yes (Other)
  Sender: FDA-Public Use
  Company Number: US-PFIZER INC-2008018842

PATIENT
  Sex: Female
  Weight: 102 kg

DRUGS (6)
  1. NEURONTIN [Suspect]
     Indication: NEURALGIA
  2. NEURONTIN [Suspect]
     Indication: FIBROMYALGIA
  3. THYROID TAB [Concomitant]
  4. VICODIN [Concomitant]
  5. GLUCOPHAGE [Concomitant]
  6. ANTI-DIABETICS [Concomitant]

REACTIONS (3)
  - ANGIOEDEMA [None]
  - HYPERSENSITIVITY [None]
  - THROAT TIGHTNESS [None]
